FAERS Safety Report 12276906 (Version 1)
Quarter: 2016Q2

REPORT INFORMATION
  Report Type: Spontaneous
  Country: US (occurrence: None)
  Receive Date: 20160415
  Receipt Date: 20160415
  Transmission Date: 20160815
  Serious: Yes (Other)
  Sender: FDA-Public Use
  Company Number: None

PATIENT
  Age: 35 Year
  Sex: Female

DRUGS (1)
  1. LUPRON DEPOT [Suspect]
     Active Substance: LEUPROLIDE ACETATE
     Indication: ENDOMETRIOSIS
     Dosage: 11.25MG EVERY 3 MONTHS INTRAMUSCULAR
     Route: 030

REACTIONS (4)
  - Hemiparesis [None]
  - Chest pain [None]
  - Hyperhidrosis [None]
  - Musculoskeletal pain [None]

NARRATIVE: CASE EVENT DATE: 20160411
